FAERS Safety Report 16899803 (Version 3)
Quarter: 2019Q4

REPORT INFORMATION
  Report Type: Spontaneous
  Country: BR (occurrence: BR)
  Receive Date: 20191009
  Receipt Date: 20191231
  Transmission Date: 20200122
  Serious: No
  Sender: FDA-Public Use
  Company Number: BR-GLAXOSMITHKLINE-BR2017GSK171768

PATIENT
  Age: 40 Year
  Sex: Female
  Weight: 62 kg

DRUGS (3)
  1. CHLOROQUINE PHOSPHATE. [Concomitant]
     Active Substance: CHLOROQUINE PHOSPHATE
     Indication: PRODUCT USED FOR UNKNOWN INDICATION
  2. IMURAN [Suspect]
     Active Substance: AZATHIOPRINE
     Indication: PRODUCT USED FOR UNKNOWN INDICATION
     Dosage: 1 DF, QD
  3. BENLYSTA [Suspect]
     Active Substance: BELIMUMAB
     Indication: SYSTEMIC LUPUS ERYTHEMATOSUS
     Dosage: 600 MG, UNK
     Dates: start: 20171030

REACTIONS (16)
  - Tachycardia [Recovered/Resolved]
  - Nausea [Unknown]
  - Inappropriate schedule of product administration [Recovered/Resolved]
  - Ear infection [Recovered/Resolved]
  - Arthralgia [Unknown]
  - Drug effective for unapproved indication [Unknown]
  - Fatigue [Recovered/Resolved]
  - Weight increased [Unknown]
  - Laryngitis [Recovered/Resolved]
  - Drug ineffective [Unknown]
  - Product dose omission [Recovered/Resolved]
  - Urinary tract infection [Recovered/Resolved]
  - Underdose [Not Recovered/Not Resolved]
  - Weight decreased [Unknown]
  - Pain in extremity [Recovered/Resolved]
  - Anxiety [Not Recovered/Not Resolved]

NARRATIVE: CASE EVENT DATE: 20180119
